FAERS Safety Report 6840778-0 (Version None)
Quarter: 2010Q3

REPORT INFORMATION
  Report Type: 
  Country: None (occurrence: None)
  Receive Date: 20100714
  Receipt Date: 20100708
  Transmission Date: 20110219
  Serious: Yes (Death)
  Sender: FDA-Public Use
  Company Number: JP-EISAI INC.-E2020-07030-SPO-JP

PATIENT
  Age: 92 Year
  Sex: Male

DRUGS (10)
  1. ARICEPT [Suspect]
     Indication: DEMENTIA ALZHEIMER'S TYPE
     Route: 048
  2. BAYSASPIRIN [Suspect]
     Indication: PRODUCT USED FOR UNKNOWN INDICATION
  3. ALLOPURINOL [Concomitant]
     Route: 048
  4. TAKEPRON [Concomitant]
  5. LASIX [Concomitant]
  6. DIGOXIN [Concomitant]
  7. PANALDINE [Concomitant]
  8. VASOLAN [Concomitant]
     Route: 048
  9. LIPITOR [Concomitant]
     Dosage: UNKNOWN
  10. CALCIUM [Concomitant]
     Dosage: UNKNOWN

REACTIONS (1)
  - ANAEMIA [None]
